FAERS Safety Report 9352046 (Version 1)
Quarter: 2013Q2

REPORT INFORMATION
  Report Type: Spontaneous
  Country: GB (occurrence: GB)
  Receive Date: 20130617
  Receipt Date: 20130617
  Transmission Date: 20140414
  Serious: Yes (Other)
  Sender: FDA-Public Use
  Company Number: GB-TEVA-412190ISR

PATIENT
  Age: 32 Year
  Sex: Female
  Weight: 58.06 kg

DRUGS (1)
  1. TRIMETHOPRIM [Suspect]
     Indication: URINARY TRACT INFECTION
     Dosage: 400 MILLIGRAM DAILY; 200MG TWICE DAY FOR SEVEN DAYS.
     Route: 048
     Dates: start: 20130427, end: 20130430

REACTIONS (11)
  - Nausea [Recovered/Resolved]
  - Dizziness [Recovered/Resolved]
  - Decreased appetite [Recovered/Resolved]
  - Tendonitis [Not Recovered/Not Resolved]
  - Disorientation [Unknown]
  - Fatigue [Unknown]
  - Hypersomnia [Unknown]
  - Decreased appetite [Unknown]
  - Gastrointestinal disorder [Unknown]
  - Faecal incontinence [Unknown]
  - Ligament pain [Recovered/Resolved]
